FAERS Safety Report 7793138-2 (Version None)
Quarter: 2011Q4

REPORT INFORMATION
  Report Type: 
  Country: None (occurrence: None)
  Receive Date: 20111003
  Receipt Date: 20110928
  Transmission Date: 20120403
  Serious: Yes (Other)
  Sender: FDA-Public Use
  Company Number: US-SANOFI-AVENTIS-2011SA035275

PATIENT
  Age: 69 Year
  Sex: Female

DRUGS (7)
  1. CLONIDINE [Concomitant]
  2. AMLODIPINE [Concomitant]
  3. ZOCOR [Concomitant]
  4. PLAVIX [Suspect]
     Route: 048
     Dates: start: 20080623, end: 20110503
  5. COREG [Concomitant]
  6. PLAVIX [Suspect]
     Indication: CEREBROVASCULAR ACCIDENT PROPHYLAXIS
     Route: 048
     Dates: start: 20080623, end: 20110503
  7. HYDROCHLOROTHIAZIDE [Concomitant]

REACTIONS (4)
  - HYPERTENSIVE ENCEPHALOPATHY [None]
  - TRANSIENT ISCHAEMIC ATTACK [None]
  - HYPERTENSION [None]
  - DRUG INEFFECTIVE [None]
